FAERS Safety Report 4367529-6 (Version None)
Quarter: 2004Q2

REPORT INFORMATION
  Report Type: 
  Country: None (occurrence: None)
  Receive Date: 20040601
  Receipt Date: 20040521
  Transmission Date: 20050107
  Serious: Yes (Hospitalization)
  Sender: FDA-Public Use
  Company Number: AU-ROCHE-368424

PATIENT
  Age: 73 Year
  Sex: Female
  Weight: 66.4 kg

DRUGS (9)
  1. IBANDRONIC ACID [Suspect]
     Indication: OSTEOPOROSIS POSTMENOPAUSAL
     Dosage: ROUTE, DOSE AND FREQUENCY BLINDED. 10 MAY 2004: IV MEDICATION WAS INTERUPTED. 14 MAY 2004: ORAL MED+
     Route: 065
     Dates: start: 20030109, end: 20040515
  2. IBANDRONIC ACID [Suspect]
     Dosage: ORAL STUDY MEDICATION ONLY.
     Route: 065
     Dates: start: 20040520, end: 20040521
  3. OMEPRAZOLE [Concomitant]
     Dates: start: 19920615
  4. CARTIA (ASPIRIN) [Concomitant]
     Dates: start: 19980509
  5. NORMISON [Concomitant]
     Dates: start: 20020915
  6. CELEBREX [Concomitant]
     Dates: end: 20030514
  7. LIPITOR [Concomitant]
     Dates: start: 20030603
  8. COVERSYL [Concomitant]
     Dates: start: 20030514
  9. LUVOX [Concomitant]
     Dates: start: 20040329

REACTIONS (9)
  - CELLULITIS [None]
  - EYE DISCHARGE [None]
  - EYE PAIN [None]
  - EYELID OEDEMA [None]
  - HYPOTENSION [None]
  - IRIDOCYCLITIS [None]
  - NEUTROPHILIA [None]
  - PYREXIA [None]
  - VISUAL ACUITY REDUCED [None]
